FAERS Safety Report 18706288 (Version 1)
Quarter: 2021Q1

REPORT INFORMATION
  Report Type: Spontaneous
  Country: US (occurrence: US)
  Receive Date: 20210105
  Receipt Date: 20210105
  Transmission Date: 20210419
  Serious: Yes (Hospitalization)
  Sender: FDA-Public Use
  Company Number: None

PATIENT
  Age: 49 Year
  Sex: Male

DRUGS (8)
  1. REPATHA [Suspect]
     Active Substance: EVOLOCUMAB
     Indication: HYPERLIPIDAEMIA
     Route: 058
     Dates: start: 20200925
  2. LEVOTHYROXIN [Concomitant]
     Active Substance: LEVOTHYROXINE
  3. NITROGLYCEN SUB [Concomitant]
  4. BISOPROL FUM [Concomitant]
     Active Substance: BISOPROLOL FUMARATE
  5. BYSTOLIC [Concomitant]
     Active Substance: NEBIVOLOL HYDROCHLORIDE
  6. EZETIMIBE. [Concomitant]
     Active Substance: EZETIMIBE
  7. LISINOPRIL AND HYDROCHLOROTHIAZIDE [Concomitant]
     Active Substance: HYDROCHLOROTHIAZIDE\LISINOPRIL
  8. COLESEVELAM [Concomitant]
     Active Substance: COLESEVELAM

REACTIONS (1)
  - Tibia fracture [None]

NARRATIVE: CASE EVENT DATE: 20201231
